FAERS Safety Report 4448880-8 (Version None)
Quarter: 2004Q3

REPORT INFORMATION
  Report Type: 
  Country: None (occurrence: None)
  Receive Date: 20040909
  Receipt Date: 20040820
  Transmission Date: 20050211
  Serious: Yes (Hospitalization)
  Sender: FDA-Public Use
  Company Number: US_0408104997

PATIENT
  Age: 60 Year
  Sex: Female
  Weight: 100 kg

DRUGS (1)
  1. HUMULIN 70/30 [Suspect]
     Indication: DIABETES MELLITUS
     Dosage: 105 U DAY
     Dates: start: 20020801

REACTIONS (4)
  - MYOPIA [None]
  - RETINOPATHY [None]
  - TRIPLE VESSEL BYPASS GRAFT [None]
  - VISION BLURRED [None]
